FAERS Safety Report 8303846-2 (Version None)
Quarter: 2012Q2

REPORT INFORMATION
  Report Type: 
  Country: None (occurrence: None)
  Receive Date: 20120420
  Receipt Date: 20120420
  Transmission Date: 20120825
  Serious: No
  Sender: FDA-Public Use
  Company Number: None

PATIENT
  Age: 79 Year
  Sex: Male
  Weight: 93.2 kg

DRUGS (2)
  1. DABIGATRAN [Suspect]
     Indication: ATRIAL FIBRILLATION
     Dosage: 150 MG BID PO
     Route: 048
     Dates: start: 20111011
  2. ASPIRIN [Suspect]
     Indication: ATRIAL FIBRILLATION
     Dosage: ASPIRIN MG EVERY DAY PO
     Route: 048
     Dates: start: 20111221

REACTIONS (2)
  - RECTAL HAEMORRHAGE [None]
  - GASTRIC HAEMORRHAGE [None]
